FAERS Safety Report 12121531 (Version 1)
Quarter: 2016Q1

REPORT INFORMATION
  Report Type: Spontaneous
  Country: US (occurrence: US)
  Receive Date: 20160226
  Receipt Date: 20160226
  Transmission Date: 20160526
  Serious: No
  Sender: FDA-Public Use
  Company Number: US-ALLERGAN-1303563US

PATIENT
  Age: 83 Year
  Sex: Female

DRUGS (4)
  1. REFRESH CELLUVISC [Suspect]
     Active Substance: CARBOXYMETHYLCELLULOSE SODIUM
     Indication: EYE LUBRICATION THERAPY
     Dosage: 2 GTT, QHS
     Route: 047
     Dates: start: 20130306
  2. REFRESH OPTIVE SENSITIVE [Suspect]
     Active Substance: CARBOXYMETHYLCELLULOSE SODIUM\GLYCERIN
     Indication: EYE LUBRICATION THERAPY
     Dosage: 2 GTT, PRN
     Route: 047
     Dates: start: 20130306
  3. KETOROLAC [Concomitant]
     Active Substance: KETOROLAC\KETOROLAC TROMETHAMINE
     Indication: CATARACT OPERATION
     Dosage: 2 GTT, BID
     Route: 047
     Dates: start: 201302
  4. PREDNISOLONE. [Concomitant]
     Active Substance: PREDNISOLONE
     Indication: CATARACT OPERATION
     Dosage: 2 GTT, BID
     Route: 047
     Dates: start: 201302

REACTIONS (2)
  - Vision blurred [Recovering/Resolving]
  - Foreign body sensation in eyes [Recovering/Resolving]
